FAERS Safety Report 11493935 (Version 1)
Quarter: 2015Q3

REPORT INFORMATION
  Report Type: Spontaneous
  Country: US (occurrence: None)
  Receive Date: 20150910
  Receipt Date: 20150910
  Transmission Date: 20151125
  Serious: Yes (Life-Threatening, Disabling, Other)
  Sender: FDA-Public Use
  Company Number: None

PATIENT
  Age: 55 Year
  Sex: Female
  Weight: 48.54 kg

DRUGS (1)
  1. PICATO [Suspect]
     Active Substance: INGENOL MEBUTATE
     Indication: ACTINIC KERATOSIS
     Dosage: APPLY TOPICALLY FOR 2 DAYS; APPLIED TO A SURFACE, USUALLY THE SKIN

REACTIONS (9)
  - Impaired work ability [None]
  - Toxic epidermal necrolysis [None]
  - Application site burn [None]
  - Economic problem [None]
  - Application site reaction [None]
  - Pain [None]
  - Scar [None]
  - Motor dysfunction [None]
  - Sensory disturbance [None]

NARRATIVE: CASE EVENT DATE: 20150823
